FAERS Safety Report 8621749 (Version 2)
Quarter: 2013Q1

REPORT INFORMATION
  Report Type: Spontaneous
  Country: US (occurrence: None)
  Receive Date: 20120605
  Receipt Date: 20130114
  Transmission Date: 20140127
  Serious: Yes (Hospitalization)
  Sender: FDA-Public Use
  Company Number: 12US004587

PATIENT
  Age: 15 Year
  Sex: Female
  Weight: 52.2 kg

DRUGS (6)
  1. ACANYA [Suspect]
     Indication: ACNE
     Route: 061
     Dates: start: 20120322, end: 20120522
  2. MULTI-VITAMIN [Concomitant]
  3. ADVIL [Concomitant]
  4. MIDOL (ACETYLSALICYLIC ACID, CAFFEINE, CINNAMEDRINE, PHENACETIN) [Concomitant]
  5. EXCEDRIN MIGRAINE (ACETYLSALICYLIC ACID, CAFFEINE, PARACETAMOL) [Concomitant]
  6. CLINDAMYCIN (CLINDAMYCIN) [Concomitant]

REACTIONS (3)
  - Viral pharyngitis [None]
  - Headache [None]
  - Pain [None]
